FAERS Safety Report 12233518 (Version 9)
Quarter: 2016Q4

REPORT INFORMATION
  Report Type: Spontaneous
  Country: TW (occurrence: TW)
  Receive Date: 20160404
  Receipt Date: 20161230
  Transmission Date: 20170207
  Serious: Yes (Hospitalization, Other)
  Sender: FDA-Public Use
  Company Number: TW-AMGEN-TWNSP2016037292

PATIENT
  Age: 53 Year
  Sex: Male

DRUGS (8)
  1. SULFASALAZINE. [Concomitant]
     Active Substance: SULFASALAZINE
     Indication: ANKYLOSING SPONDYLITIS
     Dosage: 1 DF, TWICE A DAY (BID)
     Route: 048
  2. MELOXICAM. [Concomitant]
     Active Substance: MELOXICAM
     Indication: ANKYLOSING SPONDYLITIS
     Dosage: 1 DF, TWICE A DAY BID
     Route: 048
  3. TRAMADOL. [Concomitant]
     Active Substance: TRAMADOL
     Indication: ANKYLOSING SPONDYLITIS
     Dosage: 1 DF, TWICE A DAY BID
     Route: 048
  4. ENBREL [Suspect]
     Active Substance: ETANERCEPT
     Indication: ANKYLOSING SPONDYLITIS
     Dosage: 25 MG, TWICE A WEEK (BIW)
     Route: 058
     Dates: start: 20101129
  5. ENBREL [Suspect]
     Active Substance: ETANERCEPT
     Dosage: 25 MG, WEEKLY (QW)
     Route: 058
     Dates: start: 2016
  6. MTX [Concomitant]
     Active Substance: METHOTREXATE SODIUM
     Indication: ANKYLOSING SPONDYLITIS
     Dosage: 4 DF PER WEEK
     Route: 048
  7. ENBREL [Suspect]
     Active Substance: ETANERCEPT
     Dosage: 25 MG, WEEKLY (QW)
     Route: 058
     Dates: start: 20151028, end: 20160309
  8. ANCOGEN [Concomitant]
     Indication: ANKYLOSING SPONDYLITIS
     Dosage: 1 DF, TWICE A DAY BID
     Route: 048

REACTIONS (13)
  - Rash [Not Recovered/Not Resolved]
  - Back pain [Not Recovered/Not Resolved]
  - Wound [Recovered/Resolved]
  - Product use issue [Unknown]
  - Joint swelling [Not Recovered/Not Resolved]
  - Localised infection [Recovered/Resolved]
  - Tuberculosis [Recovering/Resolving]
  - Folliculitis [Not Recovered/Not Resolved]
  - Infection [Recovering/Resolving]
  - Swelling [Recovered/Resolved]
  - Purulent discharge [Recovered/Resolved]
  - Pain [Unknown]
  - Arthralgia [Not Recovered/Not Resolved]

NARRATIVE: CASE EVENT DATE: 20151028
